FAERS Safety Report 13582968 (Version 1)
Quarter: 2017Q2

REPORT INFORMATION
  Report Type: Spontaneous
  Country: AU (occurrence: AU)
  Receive Date: 20170525
  Receipt Date: 20170525
  Transmission Date: 20170830
  Serious: Yes (Hospitalization)
  Sender: FDA-Public Use
  Company Number: AU-IMPAX LABORATORIES, INC-2017-IPXL-01511

PATIENT
  Age: 9 Year
  Sex: Male
  Weight: 32 kg

DRUGS (6)
  1. ADRENACLICK [Suspect]
     Active Substance: EPINEPHRINE
     Dosage: 25 ?G OF BOLUS
     Route: 042
  2. SALBUTAMOL [Concomitant]
     Active Substance: ALBUTEROL
     Dosage: UNK
     Route: 065
  3. ADRENACLICK [Suspect]
     Active Substance: EPINEPHRINE
     Dosage: 10 ?G PER MINUTE
     Route: 042
  4. ADRENACLICK [Suspect]
     Active Substance: EPINEPHRINE
     Indication: ANAPHYLACTIC REACTION
     Dosage: 300 ?G, VIA A FIXED-DOSE AUTO INJECTOR
     Route: 030
  5. ADRENACLICK [Suspect]
     Active Substance: EPINEPHRINE
     Dosage: 300 ?G, UNK
     Route: 030
  6. SALBUTAMOL [Concomitant]
     Active Substance: ALBUTEROL
     Indication: ASTHMA
     Dosage: 600 ?G, VIA METERED DOSE INHALER (SIX PUFFS)
     Route: 050

REACTIONS (5)
  - Toxicity to various agents [Recovered/Resolved]
  - Agitation [Recovered/Resolved]
  - Vomiting [Recovered/Resolved]
  - Blood pressure increased [Recovered/Resolved]
  - Sinus tachycardia [Recovered/Resolved]
